FAERS Safety Report 4964802-5 (Version None)
Quarter: 2006Q2

REPORT INFORMATION
  Report Type: 
  Country: None (occurrence: None)
  Receive Date: 20060406
  Receipt Date: 20051226
  Transmission Date: 20061013
  Serious: Yes (Hospitalization)
  Sender: FDA-Public Use
  Company Number: JP-ROCHE-430173

PATIENT
  Age: 68 Year
  Sex: Female

DRUGS (2)
  1. PEGASYS [Suspect]
     Route: 058
     Dates: start: 20050415, end: 20051115
  2. PEGASYS [Suspect]
     Route: 058
     Dates: start: 20051124, end: 20051201

REACTIONS (1)
  - TUBERCULOSIS [None]
